FAERS Safety Report 5156509-9 (Version None)
Quarter: 2006Q4

REPORT INFORMATION
  Report Type: 
  Country: None (occurrence: None)
  Receive Date: 20061113
  Receipt Date: 20061028
  Transmission Date: 20070319
  Serious: Yes (Other)
  Sender: FDA-Public Use
  Company Number: 2006110762

PATIENT
  Age: 70 Year
  Sex: Female
  Weight: 63.5036 kg

DRUGS (9)
  1. NARDIL [Suspect]
     Indication: DEPRESSION
     Dosage: 90 MG (15 MG, 2 IN 1 D), ORAL
     Route: 048
     Dates: start: 19971201
  2. TOPROL-XL [Concomitant]
  3. SYNTHROID [Concomitant]
  4. PREDNISONE TAB [Concomitant]
  5. ALL OTHER THERAPEUTIC PRODUCTS (ALL OTHER THERAPEUTIC PRODUCTS) [Concomitant]
  6. FOLIC ACID [Concomitant]
  7. MULTI-VITAMINS [Concomitant]
  8. MARPLAN [Concomitant]
  9. ELAVIL [Concomitant]

REACTIONS (3)
  - EXCORIATION [None]
  - RASH [None]
  - SOMATIC DELUSION [None]
